FAERS Safety Report 5870769-8 (Version None)
Quarter: 2008Q3

REPORT INFORMATION
  Report Type: 
  Country: None (occurrence: None)
  Receive Date: 20080904
  Receipt Date: 20080821
  Transmission Date: 20090109
  Serious: Yes (Hospitalization)
  Sender: FDA-Public Use
  Company Number: SV-ELI_LILLY_AND_COMPANY-SV200808004558

PATIENT
  Age: 57 Year
  Sex: Female

DRUGS (4)
  1. DULOXETINE HYDROCHLORIDE [Suspect]
     Indication: NEUROPATHY PERIPHERAL
     Dosage: 30 MG, UNK
     Route: 065
  2. EUTIROX [Concomitant]
     Dosage: UNK, UNKNOWN
     Route: 065
  3. NORVASC [Concomitant]
     Dosage: UNK, UNKNOWN
     Route: 065
  4. EVISTA [Concomitant]
     Dosage: UNK, UNKNOWN
     Route: 065

REACTIONS (3)
  - CONFUSIONAL STATE [None]
  - HYPOKALAEMIA [None]
  - HYPONATRAEMIA [None]
